FAERS Safety Report 5917554-6 (Version None)
Quarter: 2008Q4

REPORT INFORMATION
  Report Type: 
  Country: None (occurrence: None)
  Receive Date: 20081010
  Receipt Date: 20081010
  Transmission Date: 20090506
  Serious: Yes (Life-Threatening, Hospitalization)
  Sender: FDA-Public Use
  Company Number: None

PATIENT
  Age: 41 Year
  Sex: Male
  Weight: 77.1115 kg

DRUGS (2)
  1. SEROQUEL [Suspect]
     Indication: BIPOLAR II DISORDER
     Dosage: 200 - 400 DAILY
  2. EFFEXOR [Suspect]
     Indication: MENTAL DISORDER
     Dosage: 75 DAILY

REACTIONS (29)
  - ABNORMAL BEHAVIOUR [None]
  - ACTIVITIES OF DAILY LIVING IMPAIRED [None]
  - ALTERED STATE OF CONSCIOUSNESS [None]
  - ANXIETY [None]
  - BLOOD CHOLESTEROL INCREASED [None]
  - BRAIN INJURY [None]
  - CARDIAC DISORDER [None]
  - DEPRESSED MOOD [None]
  - FEAR [None]
  - FEELING ABNORMAL [None]
  - GENERAL PHYSICAL HEALTH DETERIORATION [None]
  - HEART INJURY [None]
  - HEART RATE INCREASED [None]
  - HYPERTENSION [None]
  - ILL-DEFINED DISORDER [None]
  - MENTAL DISABILITY [None]
  - MENTAL DISORDER [None]
  - MENTAL IMPAIRMENT [None]
  - NERVOUS SYSTEM DISORDER [None]
  - OVERWEIGHT [None]
  - PALPITATIONS [None]
  - PERSONALITY CHANGE [None]
  - PRODUCT QUALITY ISSUE [None]
  - SCREAMING [None]
  - SELF ESTEEM DECREASED [None]
  - STRESS [None]
  - THINKING ABNORMAL [None]
  - VENOUS INJURY [None]
  - WITHDRAWAL SYNDROME [None]
